FAERS Safety Report 19939408 (Version 8)
Quarter: 2022Q2

REPORT INFORMATION
  Report Type: Spontaneous
  Country: CA (occurrence: CA)
  Receive Date: 20211011
  Receipt Date: 20220614
  Transmission Date: 20220721
  Serious: Yes (Life-Threatening, Hospitalization, Other)
  Sender: FDA-Public Use
  Company Number: CA-PFIZER INC-2021606098

PATIENT
  Age: 74 Year
  Sex: Male
  Weight: 71.2 kg

DRUGS (3)
  1. RUXIENCE [Suspect]
     Active Substance: RITUXIMAB-PVVR
     Indication: Granulomatosis with polyangiitis
     Dosage: 1000 MG ,WEEK 0 AND 2
     Route: 042
     Dates: start: 20210520, end: 20210603
  2. RUXIENCE [Suspect]
     Active Substance: RITUXIMAB-PVVR
     Indication: Microscopic polyangiitis
     Dosage: 1000 MG, WEEK 0 AND 2
     Route: 042
     Dates: start: 20211130
  3. PREDNISONE [Concomitant]
     Active Substance: PREDNISONE
     Dosage: UNK

REACTIONS (8)
  - Suicidal ideation [Unknown]
  - Chronic obstructive pulmonary disease [Recovering/Resolving]
  - Extremity necrosis [Not Recovered/Not Resolved]
  - Angioplasty [Unknown]
  - Off label use [Unknown]
  - Infusion site extravasation [Unknown]
  - Peripheral swelling [Unknown]
  - Pain [Unknown]

NARRATIVE: CASE EVENT DATE: 20210520
